FAERS Safety Report 7518302-9 (Version None)
Quarter: 2011Q2

REPORT INFORMATION
  Report Type: 
  Country: None (occurrence: None)
  Receive Date: 20110523
  Receipt Date: 20110509
  Transmission Date: 20111010
  Serious: Yes (Hospitalization)
  Sender: FDA-Public Use
  Company Number: 1000020991

PATIENT
  Age: 75 Year
  Sex: Female

DRUGS (5)
  1. ALENDRONIC ACID (ALENDRONIC ACID) (ALENDRONIC ACID) [Concomitant]
  2. MEMANTINE [Suspect]
     Indication: DEMENTIA ALZHEIMER'S TYPE
     Dosage: DOSE INCREASED WITH UP TITRATION, ORAL
     Route: 048
     Dates: start: 20110222, end: 20110314
  3. CALCIGRAN FORTE (CALCIUM CARBONATE, CHOLECALCIFEROL) (CALCIUM CARBONAT [Concomitant]
  4. ZOLOFT (SERTRALINE) (SERTRALINE) [Concomitant]
  5. MEMANTINE [Suspect]
     Indication: DEMENTIA ALZHEIMER'S TYPE
     Dosage: 20 MG (20 MG, 1 IN 1 D), ORAL
     Route: 048
     Dates: start: 20110315, end: 20110401

REACTIONS (5)
  - MENTAL STATUS CHANGES [None]
  - AKATHISIA [None]
  - AGITATION [None]
  - HALLUCINATION [None]
  - SUICIDAL IDEATION [None]
